FAERS Safety Report 6379686-0 (Version None)
Quarter: 2009Q3

REPORT INFORMATION
  Report Type: 
  Country: None (occurrence: None)
  Receive Date: 20090928
  Receipt Date: 20090922
  Transmission Date: 20100115
  Serious: Yes (Other)
  Sender: FDA-Public Use
  Company Number: BR-ROCHE-658121

PATIENT
  Sex: Female
  Weight: 70 kg

DRUGS (6)
  1. RIVOTRIL [Suspect]
     Indication: INSOMNIA
     Dosage: INDICATION: INSOMNIA
     Route: 060
     Dates: start: 20090921
  2. RIVOTRIL [Suspect]
     Route: 060
  3. PROLOPA [Suspect]
     Indication: PARKINSONISM
     Route: 048
     Dates: start: 20090911, end: 20090920
  4. PROLOPA [Suspect]
     Route: 048
     Dates: start: 20090921, end: 20090922
  5. RIVOTRIL [Suspect]
     Dosage: STRENGTH: 2.5 MG/ML, DOSE: 10 MG/ML DAILY, INDICATION: INSOMNIA
     Route: 048
     Dates: start: 20090921
  6. RIVOTRIL [Suspect]
     Dosage: STRENGTH: 2.5 MG/ML, DOSE: 7.5 MG/ML DAILY
     Route: 048

REACTIONS (4)
  - AGITATION [None]
  - ANXIETY [None]
  - DELUSION [None]
  - INSOMNIA [None]
